FAERS Safety Report 18717425 (Version 1)
Quarter: 2021Q1

REPORT INFORMATION
  Report Type: Report from Study
  Country: US (occurrence: US)
  Receive Date: 20210108
  Receipt Date: 20210108
  Transmission Date: 20210419
  Serious: Yes (Hospitalization, Other)
  Sender: FDA-Public Use
  Company Number: US-AMGEN-USACT2020213194

PATIENT
  Age: 18 Year
  Sex: Female
  Weight: 40.9 kg

DRUGS (5)
  1. METHOTREXATE. [Suspect]
     Active Substance: METHOTREXATE
     Indication: B PRECURSOR TYPE ACUTE LEUKAEMIA
     Dosage: 15 MILLIGRAM
     Route: 037
     Dates: start: 20200619, end: 20200619
  2. BLINATUMOMAB [Suspect]
     Active Substance: BLINATUMOMAB
     Indication: B PRECURSOR TYPE ACUTE LEUKAEMIA
     Dosage: 18 MICROGRAM
     Route: 042
     Dates: start: 20200609
  3. BLINATUMOMAB [Suspect]
     Active Substance: BLINATUMOMAB
     Dosage: 126 MICROGRAM (TO RUN FOR 7 DAYS)
     Route: 042
     Dates: start: 20200612
  4. BLINATUMOMAB [Suspect]
     Active Substance: BLINATUMOMAB
     Dosage: 126 MICROGRAM (TO RUN FOR 7 DAYS)
     Route: 042
     Dates: start: 20200619
  5. BLINATUMOMAB [Suspect]
     Active Substance: BLINATUMOMAB
     Dosage: 72 MICROGRAM (TO RUN FOR 4 DAYS)
     Route: 042
     Dates: start: 20200626

REACTIONS (5)
  - Dysarthria [Recovered/Resolved]
  - Ataxia [Recovered/Resolved]
  - Muscle twitching [Recovered/Resolved]
  - Seizure [Recovered/Resolved]
  - Tremor [Recovered/Resolved]

NARRATIVE: CASE EVENT DATE: 20200627
